FAERS Safety Report 9967879 (Version 1)
Quarter: 2014Q1

REPORT INFORMATION
  Report Type: Report from Study
  Country: US (occurrence: US)
  Receive Date: 20140306
  Receipt Date: 20140306
  Transmission Date: 20141002
  Serious: No
  Sender: FDA-Public Use
  Company Number: US-ABBVIE-13P-163-1147568-00

PATIENT
  Age: 31 Year
  Sex: Male

DRUGS (3)
  1. HUMIRA [Suspect]
     Indication: ANKYLOSING SPONDYLITIS
     Dosage: INITIAL DOSE ONLY
     Dates: start: 20130716
  2. PERCOCET [Concomitant]
     Indication: PAIN
     Dosage: 7.5MG/325MG
  3. PERCOCET [Concomitant]
     Dosage: 5MG/325MG PILLS
     Dates: start: 20130909

REACTIONS (2)
  - Pain [Not Recovered/Not Resolved]
  - Latent tuberculosis [Not Recovered/Not Resolved]
